FAERS Safety Report 9964348 (Version 1)
Quarter: 2014Q1

REPORT INFORMATION
  Report Type: Spontaneous
  Country: CH (occurrence: CH)
  Receive Date: 20140305
  Receipt Date: 20140305
  Transmission Date: 20141002
  Serious: Yes (Hospitalization, Disabling)
  Sender: FDA-Public Use
  Company Number: CH-PFIZER INC-2014062345

PATIENT
  Age: 49 Year
  Sex: Female

DRUGS (8)
  1. CORDARONE [Suspect]
     Indication: ATRIAL FIBRILLATION
     Dosage: 1 DF, DAILY
     Route: 048
     Dates: start: 200108, end: 200408
  2. NEO MERCAZOLE [Suspect]
     Indication: HYPERTHYROIDISM
     Dosage: 1 DF, DAILY
     Route: 048
     Dates: start: 200408, end: 20041203
  3. MARCOUMAR [Concomitant]
     Dosage: UNK
  4. SIFROL [Concomitant]
     Dosage: UNK
  5. PREDNISONE [Concomitant]
     Dosage: UNK
  6. NEXIUM [Concomitant]
  7. SURMONTIL [Concomitant]
  8. CISTOBIL [Concomitant]

REACTIONS (5)
  - Agranulocytosis [Recovered/Resolved]
  - Enterobacter sepsis [Recovered/Resolved]
  - Device related sepsis [Recovered/Resolved]
  - Hyperthyroidism [Recovered/Resolved]
  - Hyperthyroidism [Recovered/Resolved]
